FAERS Safety Report 6664645-0 (Version None)
Quarter: 2010Q1

REPORT INFORMATION
  Report Type: 
  Country: None (occurrence: None)
  Receive Date: 20100330
  Receipt Date: 20100316
  Transmission Date: 20100710
  Serious: Yes (Death, Other)
  Sender: FDA-Public Use
  Company Number: 144-21880-10012039

PATIENT
  Age: 78 Year
  Sex: Male

DRUGS (2)
  1. REVLIMID [Suspect]
     Indication: MULTIPLE MYELOMA
     Dosage: 10 MG, ORAL
     Route: 048
     Dates: start: 20091014
  2. DEXAMETHASONE [Suspect]
     Indication: MULTIPLE MYELOMA
     Dosage: 20 MG, ORAL
     Route: 048
     Dates: start: 20090107

REACTIONS (23)
  - ASPHYXIA [None]
  - ASPIRATION [None]
  - ASPIRATION BRONCHIAL [None]
  - CANDIDIASIS [None]
  - ENTERITIS [None]
  - FAECAL VOMITING [None]
  - HEPATIC STEATOSIS [None]
  - LARYNGITIS [None]
  - LOBAR PNEUMONIA [None]
  - MALAISE [None]
  - MICROLITHIASIS [None]
  - MYOCARDIAL FIBROSIS [None]
  - MYOCARDIAL ISCHAEMIA [None]
  - NASOPHARYNGITIS [None]
  - PALLOR [None]
  - PANCREATITIS ACUTE [None]
  - PLATELET COUNT DECREASED [None]
  - PULMONARY CONGESTION [None]
  - PULMONARY OEDEMA [None]
  - PYELONEPHRITIS [None]
  - RENAL PAPILLARY NECROSIS [None]
  - RENAL TUBULAR NECROSIS [None]
  - UPPER GASTROINTESTINAL HAEMORRHAGE [None]
